FAERS Safety Report 7517895-5 (Version None)
Quarter: 2011Q2

REPORT INFORMATION
  Report Type: 
  Country: None (occurrence: None)
  Receive Date: 20110527
  Receipt Date: 20110527
  Transmission Date: 20111010
  Serious: Yes (Other)
  Sender: FDA-Public Use
  Company Number: None

PATIENT
  Age: 71 Year
  Sex: Male
  Weight: 77.1115 kg

DRUGS (1)
  1. METOPROLOL TARTRATE [Suspect]
     Indication: HYPERTENSION
     Dates: start: 20100601, end: 20110513

REACTIONS (11)
  - BLOOD GLUCOSE DECREASED [None]
  - SLEEP DISORDER [None]
  - BLOOD PRESSURE DECREASED [None]
  - PALPITATIONS [None]
  - ANXIETY [None]
  - FATIGUE [None]
  - TREMOR [None]
  - HEART RATE DECREASED [None]
  - DIZZINESS [None]
  - ASTHENIA [None]
  - FEELING COLD [None]
